FAERS Safety Report 7756485-6 (Version None)
Quarter: 2011Q3

REPORT INFORMATION
  Report Type: 
  Country: None (occurrence: None)
  Receive Date: 20110916
  Receipt Date: 20110909
  Transmission Date: 20111222
  Serious: Yes (Other)
  Sender: FDA-Public Use
  Company Number: ES-CELGENEUS-144-21880-11073298

PATIENT
  Sex: Male

DRUGS (8)
  1. REVLIMID [Suspect]
     Dosage: 10 MILLIGRAM
     Route: 048
     Dates: start: 20100504, end: 20110802
  2. SIMVASTATINA [Concomitant]
     Indication: HYPERTENSION
     Route: 065
  3. DIOVAN HCT [Concomitant]
     Indication: HYPERTENSION
     Route: 065
     Dates: start: 20070101
  4. ASPIRIN [Concomitant]
     Route: 065
     Dates: start: 20090101
  5. FENOFIBRATE [Concomitant]
     Route: 065
     Dates: start: 20090101
  6. REVLIMID [Suspect]
     Indication: MULTIPLE MYELOMA
     Dosage: 25 MILLIGRAM
     Route: 048
     Dates: start: 20090722, end: 20100401
  7. DEXAMETHASONE [Concomitant]
     Indication: MULTIPLE MYELOMA
     Route: 065
     Dates: start: 20090722, end: 20100401
  8. OMEPRAZOLE [Concomitant]
     Route: 065
     Dates: start: 20090101

REACTIONS (1)
  - POLYCYTHAEMIA VERA [None]
